FAERS Safety Report 6284927-4 (Version None)
Quarter: 2009Q3

REPORT INFORMATION
  Report Type: 
  Country: None (occurrence: None)
  Receive Date: 20090727
  Receipt Date: 20090721
  Transmission Date: 20100115
  Serious: Yes (Life-Threatening, Other)
  Sender: FDA-Public Use
  Company Number: UA-ELI_LILLY_AND_COMPANY-UA200705004698

PATIENT
  Age: 45 Year
  Sex: Female

DRUGS (3)
  1. GEMCITABINE HCL [Suspect]
     Indication: BREAST CANCER
     Dosage: 800 MG, DAILY DURING FOUR DAYS
     Route: 013
     Dates: start: 20070427, end: 20070430
  2. XELODA [Concomitant]
     Dosage: UNK, DAILY DURING FIVE DAYS
     Route: 048
     Dates: start: 20070426, end: 20070430
  3. ENDOXAN [Concomitant]
     Dosage: UNK, UNKNOWN
     Route: 065

REACTIONS (2)
  - MEDICATION ERROR [None]
  - NEUTROPENIA [None]
